FAERS Safety Report 20637964 (Version 1)
Quarter: 2022Q1

REPORT INFORMATION
  Report Type: Spontaneous
  Country: JP (occurrence: JP)
  Receive Date: 20220325
  Receipt Date: 20220325
  Transmission Date: 20220423
  Serious: Yes (Hospitalization, Other)
  Sender: FDA-Public Use
  Company Number: JP-NOVARTISPH-NVSJ2022JP005021

PATIENT
  Age: 71 Year
  Sex: Male

DRUGS (2)
  1. IMATINIB MESYLATE [Suspect]
     Active Substance: IMATINIB MESYLATE
     Indication: Gastrointestinal stromal tumour
     Dosage: UNK
     Route: 065
  2. IMATINIB MESYLATE [Suspect]
     Active Substance: IMATINIB MESYLATE
     Dosage: UNK
     Route: 065

REACTIONS (6)
  - Eosinophilic pneumonia [Unknown]
  - Granulomatous pneumonitis [Unknown]
  - Pyrexia [Unknown]
  - Dyspnoea [Unknown]
  - Hypoxia [Unknown]
  - Pulmonary toxicity [Unknown]
